FAERS Safety Report 26092294 (Version 1)
Quarter: 2025Q4

REPORT INFORMATION
  Report Type: Spontaneous
  Country: CN (occurrence: CN)
  Receive Date: 20251126
  Receipt Date: 20251126
  Transmission Date: 20260117
  Serious: Yes (Disabling)
  Sender: TERSERA THERAPEUTICS
  Company Number: CN-ASTRAZENECA-202511CHN016409CN

PATIENT

DRUGS (2)
  1. GOSERELIN [Suspect]
     Active Substance: GOSERELIN
     Indication: Chemotherapy
     Dosage: 10.800000 MILLIGRAM,1 TIMES 1 DAY
     Route: 058
     Dates: start: 20250620, end: 20250620
  2. ZOLADEX [Suspect]
     Active Substance: GOSERELIN ACETATE
     Indication: Chemotherapy
     Dosage: UNK
     Route: 065

REACTIONS (1)
  - Myelosuppression [Recovering/Resolving]

NARRATIVE: CASE EVENT DATE: 20250627
